FAERS Safety Report 17000404 (Version 1)
Quarter: 2019Q4

REPORT INFORMATION
  Report Type: Spontaneous
  Country: US (occurrence: US)
  Receive Date: 20191106
  Receipt Date: 20191106
  Transmission Date: 20200122
  Serious: No
  Sender: FDA-Public Use
  Company Number: US-ASTRAZENECA-2019SF44047

PATIENT
  Age: 27341 Day
  Sex: Female
  Weight: 64.9 kg

DRUGS (2)
  1. BYDUREON [Suspect]
     Active Substance: EXENATIDE
     Indication: TYPE 2 DIABETES MELLITUS
     Route: 058
  2. BYDUREON BCISE [Suspect]
     Active Substance: EXENATIDE
     Indication: TYPE 2 DIABETES MELLITUS
     Route: 058

REACTIONS (6)
  - Injection site pain [Recovered/Resolved]
  - Device leakage [Unknown]
  - Injection site erythema [Recovered/Resolved]
  - Incorrect dose administered [Unknown]
  - Injection site mass [Recovered/Resolved]
  - Wrong technique in product usage process [Recovered/Resolved]
